FAERS Safety Report 23589152 (Version 2)
Quarter: 2024Q1

REPORT INFORMATION
  Report Type: Report from Study
  Country: GR (occurrence: GR)
  Receive Date: 20240303
  Receipt Date: 20240318
  Transmission Date: 20240409
  Serious: Yes (Hospitalization, Other)
  Sender: FDA-Public Use
  Company Number: GR-ABBVIE-5660009

PATIENT
  Sex: Female

DRUGS (2)
  1. CARBIDOPA\LEVODOPA [Suspect]
     Active Substance: CARBIDOPA\LEVODOPA
     Indication: Parkinson^s disease
     Dosage: MORNING DOSE: 11.4ML; CONTINUOUS RATE: 4.1ML/H; EXTRA DOSE: 1.5ML
     Route: 050
     Dates: start: 20220705
  2. CARBIDOPA\LEVODOPA [Suspect]
     Active Substance: CARBIDOPA\LEVODOPA
     Dosage: MORNING DOSE: 11.4ML; CONTINUOUS RATE: 4.1ML/H; EXTRA DOSE: 1.5ML
     Route: 050

REACTIONS (3)
  - Pulmonary embolism [Recovered/Resolved]
  - Unevaluable event [Unknown]
  - Feeding disorder [Not Recovered/Not Resolved]
